FAERS Safety Report 5741620-1 (Version None)
Quarter: 2008Q2

REPORT INFORMATION
  Report Type: 
  Country: None (occurrence: None)
  Receive Date: 20080519
  Receipt Date: 20070518
  Transmission Date: 20081010
  Serious: Yes (Life-Threatening)
  Sender: FDA-Public Use
  Company Number: US-BAYER-US-2007-018912

PATIENT
  Age: 47 Year
  Sex: Female
  Weight: 59 kg

DRUGS (1)
  1. ULTRAVIST 300 [Suspect]
     Indication: COMPUTERISED TOMOGRAM
     Dosage: UNIT DOSE: 100 ML
     Route: 042
     Dates: start: 20070517, end: 20070517

REACTIONS (2)
  - DYSPNOEA [None]
  - PRURITUS [None]
